FAERS Safety Report 5436535-2 (Version None)
Quarter: 2007Q3

REPORT INFORMATION
  Report Type: 
  Country: None (occurrence: None)
  Receive Date: 20070831
  Receipt Date: 20070823
  Transmission Date: 20080115
  Serious: No
  Sender: FDA-Public Use
  Company Number: A0672099A

PATIENT
  Sex: Female

DRUGS (1)
  1. ALLI [Suspect]

REACTIONS (8)
  - ASTHENIA [None]
  - DIARRHOEA [None]
  - FAECES DISCOLOURED [None]
  - FLATULENCE [None]
  - FREQUENT BOWEL MOVEMENTS [None]
  - IRRITABILITY [None]
  - MENSTRUAL DISORDER [None]
  - STEATORRHOEA [None]
